FAERS Safety Report 10913245 (Version 1)
Quarter: 2015Q1

REPORT INFORMATION
  Report Type: Spontaneous
  Country: US (occurrence: None)
  Receive Date: 20150311
  Receipt Date: 20150311
  Transmission Date: 20150721
  Serious: Yes (Hospitalization, Other)
  Sender: FDA-Public Use
  Company Number: None

PATIENT
  Age: 47 Year
  Sex: Female
  Weight: 56.7 kg

DRUGS (4)
  1. IBUPROPHEN [Suspect]
     Active Substance: IBUPROFEN
     Indication: INFLAMMATION
     Dosage: 1, AS NEEDED/3 TIMES, TAKEN BY MOUTH
     Route: 048
     Dates: start: 20150302, end: 20150305
  2. IBUPROPHEN [Suspect]
     Active Substance: IBUPROFEN
     Indication: MUSCULOSKELETAL PAIN
     Dosage: 1, AS NEEDED/3 TIMES, TAKEN BY MOUTH
     Route: 048
     Dates: start: 20150302, end: 20150305
  3. IBUPROPHEN [Suspect]
     Active Substance: IBUPROFEN
     Indication: NERVE COMPRESSION
     Dosage: 1, AS NEEDED/3 TIMES, TAKEN BY MOUTH
     Route: 048
     Dates: start: 20150302, end: 20150305
  4. MULTI VITAMIN [Concomitant]
     Active Substance: VITAMINS

REACTIONS (1)
  - Appendicitis [None]

NARRATIVE: CASE EVENT DATE: 20150306
